FAERS Safety Report 13865948 (Version 1)
Quarter: 2017Q3

REPORT INFORMATION
  Report Type: Spontaneous
  Country: US (occurrence: US)
  Receive Date: 20170814
  Receipt Date: 20170814
  Transmission Date: 20171127
  Serious: No
  Sender: FDA-Public Use
  Company Number: US-ROCHE-665099

PATIENT
  Age: 61 Year
  Sex: Female
  Weight: 56.8 kg

DRUGS (4)
  1. TAMIFLU [Suspect]
     Active Substance: OSELTAMIVIR PHOSPHATE
     Indication: INFLUENZA
     Route: 048
     Dates: start: 20091016, end: 20091016
  2. ALPRAZOLAM. [Concomitant]
     Active Substance: ALPRAZOLAM
     Indication: HYPOTENSION
     Route: 048
  3. COREG CR [Concomitant]
     Active Substance: CARVEDILOL PHOSPHATE
     Dosage: AT BEDTIME
     Route: 048
  4. NIFEDICAL XL [Concomitant]
     Active Substance: NIFEDIPINE
     Dosage: DRUG: NIFEDICAL XL, IN THE MORNING
     Route: 048

REACTIONS (6)
  - Pruritus [Recovered/Resolved]
  - Erythema [Not Recovered/Not Resolved]
  - Heart rate irregular [Unknown]
  - Palpitations [Recovered/Resolved]
  - Skin warm [Not Recovered/Not Resolved]
  - Heart rate increased [Not Recovered/Not Resolved]

NARRATIVE: CASE EVENT DATE: 20091016
